FAERS Safety Report 8210757-X (Version None)
Quarter: 2012Q1

REPORT INFORMATION
  Report Type: 
  Country: None (occurrence: None)
  Receive Date: 20120315
  Receipt Date: 20120306
  Transmission Date: 20120608
  Serious: Yes (Hospitalization)
  Sender: FDA-Public Use
  Company Number: US-BIOGENIDEC-2012BI008633

PATIENT
  Age: 47 Year
  Sex: Male

DRUGS (3)
  1. RISPERDAL [Concomitant]
     Indication: SEDATION
     Route: 048
     Dates: start: 20110201, end: 20110201
  2. TYSABRI [Suspect]
     Indication: MULTIPLE SCLEROSIS
     Route: 042
     Dates: start: 20090702
  3. HALDOL [Concomitant]
     Indication: SEDATION
     Route: 030
     Dates: start: 20110201, end: 20110201

REACTIONS (3)
  - MANIA [None]
  - DEMENTIA [None]
  - ASTHENIA [None]
